FAERS Safety Report 15748413 (Version 2)
Quarter: 2019Q1

REPORT INFORMATION
  Report Type: Spontaneous
  Country: NL (occurrence: NL)
  Receive Date: 20181221
  Receipt Date: 20190211
  Transmission Date: 20190417
  Serious: Yes (Other)
  Sender: FDA-Public Use
  Company Number: NL-AUROBINDO-AUR-APL-2018-060497

PATIENT

DRUGS (7)
  1. CERITINIB [Concomitant]
     Active Substance: CERITINIB
     Indication: COLON CANCER
     Dosage: 600 MILLIGRAM, (3 WEEK)
     Route: 065
  2. OXALIPLATIN. [Suspect]
     Active Substance: OXALIPLATIN
     Indication: COLON CANCER
     Dosage: 130 MILLIGRAM/SQ. METER,UNK (8 COURSES)
     Route: 065
     Dates: start: 2011
  3. CAPECITABINE. [Suspect]
     Active Substance: CAPECITABINE
     Dosage: UNK (8 COURSES)
     Route: 065
  4. CERITINIB [Concomitant]
     Active Substance: CERITINIB
     Indication: NON-SMALL CELL LUNG CANCER STAGE IV
  5. CARBOPLATIN. [Suspect]
     Active Substance: CARBOPLATIN
     Indication: NON-SMALL CELL LUNG CANCER STAGE IV
     Dosage: FIVE COURSES
     Route: 065
  6. CAPECITABINE. [Suspect]
     Active Substance: CAPECITABINE
     Indication: COLON CANCER
     Dosage: 1000 MILLIGRAM/SQ. METER, DAILY, (DAY 1-14 CYCLE; ONCE IN THREE WEEKS )
     Route: 065
  7. PEMETREXED. [Suspect]
     Active Substance: PEMETREXED
     Indication: NON-SMALL CELL LUNG CANCER STAGE IV
     Dosage: FIVE COURSES
     Route: 065

REACTIONS (12)
  - Second primary malignancy [Unknown]
  - Malignant neoplasm progression [Unknown]
  - Metastases to liver [Unknown]
  - Product use in unapproved indication [Unknown]
  - Colon cancer metastatic [Unknown]
  - Lung carcinoma cell type unspecified stage IV [Recovering/Resolving]
  - Non-small cell lung cancer metastatic [Unknown]
  - Metastases to adrenals [Unknown]
  - Palmar-plantar erythrodysaesthesia syndrome [Unknown]
  - Nausea [Unknown]
  - Malignant pleural effusion [Unknown]
  - Diarrhoea [Unknown]

NARRATIVE: CASE EVENT DATE: 201506
